FAERS Safety Report 9346989 (Version 2)
Quarter: 2013Q2

REPORT INFORMATION
  Report Type: Spontaneous
  Country: GB (occurrence: GB)
  Receive Date: 20130613
  Receipt Date: 20130618
  Transmission Date: 20140414
  Serious: Yes (Hospitalization)
  Sender: FDA-Public Use
  Company Number: PHHY2013GB057465

PATIENT
  Sex: Female

DRUGS (1)
  1. RAMIPRIL [Suspect]

REACTIONS (1)
  - Gastrointestinal disorder [Unknown]
